FAERS Safety Report 12807286 (Version 1)
Quarter: 2016Q4

REPORT INFORMATION
  Report Type: Report from Study
  Country: IN (occurrence: IN)
  Receive Date: 20161004
  Receipt Date: 20161004
  Transmission Date: 20170207
  Serious: Yes (Hospitalization)
  Sender: FDA-Public Use
  Company Number: IN-PFIZER INC-2016427701

PATIENT
  Age: 61 Year
  Sex: Male
  Weight: 62.1 kg

DRUGS (13)
  1. RANITIDINE. [Concomitant]
     Active Substance: RANITIDINE
     Indication: HYPERCHLORHYDRIA
     Dosage: 150 MG, 2X/DAY
     Route: 048
     Dates: start: 20160902, end: 20160905
  2. BLINDED BEVACIZUMAB [Suspect]
     Active Substance: BEVACIZUMAB
     Indication: SMALL CELL LUNG CANCER
     Dosage: 931.5 MG, CYCLIC (EVERY 21 DAYS)
     Route: 042
     Dates: start: 20160812
  3. DOMPERIDONE [Concomitant]
     Active Substance: DOMPERIDONE
     Indication: HYPERCHLORHYDRIA
     Dosage: 10 MG, 3X/DAY
     Route: 048
     Dates: start: 20160902, end: 20160905
  4. BLINDED PF-06439535 [Suspect]
     Active Substance: INVESTIGATIONAL PRODUCT
     Indication: SMALL CELL LUNG CANCER
     Dosage: 931.5 MG, CYCLIC (EVERY 21 DAYS)
     Route: 042
     Dates: start: 20160812
  5. DEXAMETHASONE. [Concomitant]
     Active Substance: DEXAMETHASONE
     Indication: HYPERSENSITIVITY
     Dosage: 2 MG, 2X/DAY
     Route: 048
     Dates: start: 20160902, end: 20160903
  6. PACLITAXEL. [Suspect]
     Active Substance: PACLITAXEL
     Indication: NON-SMALL CELL LUNG CANCER
     Dosage: 340 MG, SINGLE DOSE
     Route: 042
     Dates: start: 20160812, end: 20160812
  7. CARBOPLATIN. [Suspect]
     Active Substance: CARBOPLATIN
     Indication: SMALL CELL LUNG CANCER
     Dosage: 820.2 MG, SINGLE DOSE
     Route: 042
     Dates: start: 20160812, end: 20160812
  8. GRANISETRON [Concomitant]
     Active Substance: GRANISETRON
     Indication: HYPERCHLORHYDRIA
     Dosage: 1 MG, 1X/DAY
     Route: 048
     Dates: start: 20160902, end: 20160905
  9. BLINDED BEVACIZUMAB [Suspect]
     Active Substance: BEVACIZUMAB
     Indication: SMALL CELL LUNG CANCER
     Dosage: 931.5 MG, CYCLIC (EVERY 21 DAYS)
     Route: 042
     Dates: start: 20160812
  10. FILGRASTIM [Concomitant]
     Active Substance: FILGRASTIM
     Indication: PROPHYLAXIS
     Dosage: 300 MCG, SINGLE DOSE
     Route: 058
     Dates: start: 20160903, end: 20160907
  11. BLINDED PF-06439535 [Suspect]
     Active Substance: INVESTIGATIONAL PRODUCT
     Indication: SMALL CELL LUNG CANCER
     Dosage: 931.5 MG, CYCLIC (EVERY 21 DAYS)
     Route: 042
     Dates: start: 20160812
  12. CARBOPLATIN. [Suspect]
     Active Substance: CARBOPLATIN
     Dosage: 820.2 MG, CYCLIC (EVERY 21 DAYS)
     Route: 042
     Dates: start: 20160902, end: 20160902
  13. PACLITAXEL. [Suspect]
     Active Substance: PACLITAXEL
     Dosage: 340 MG, CYCLIC (EVERY 21 DAYS)
     Route: 042
     Dates: start: 20160902, end: 20160902

REACTIONS (1)
  - Lung abscess [Recovered/Resolved]

NARRATIVE: CASE EVENT DATE: 20160909
